FAERS Safety Report 16256372 (Version 3)
Quarter: 2019Q2

REPORT INFORMATION
  Report Type: Report from Study
  Country: US (occurrence: US)
  Receive Date: 20190430
  Receipt Date: 20190528
  Transmission Date: 20190711
  Serious: Yes (Hospitalization, Other)
  Sender: FDA-Public Use
  Company Number: US-TAKEDA-2019TUS025521

PATIENT
  Age: 73 Year
  Sex: Female

DRUGS (2)
  1. PONATINIB [Suspect]
     Active Substance: PONATINIB
     Indication: NON-SMALL CELL LUNG CANCER
     Dosage: 30 MILLIGRAM
     Route: 065
     Dates: start: 20190403
  2. TRAMETINIB [Suspect]
     Active Substance: TRAMETINIB
     Indication: NON-SMALL CELL LUNG CANCER
     Dosage: 2 MILLIGRAM
     Route: 065
     Dates: start: 20190403

REACTIONS (6)
  - Hypomagnesaemia [Unknown]
  - Myocardial infarction [Unknown]
  - Acute kidney injury [Unknown]
  - Diarrhoea [Unknown]
  - Cough [Unknown]
  - Muscular weakness [Unknown]

NARRATIVE: CASE EVENT DATE: 20190418
